FAERS Safety Report 4297798-2 (Version None)
Quarter: 2004Q1

REPORT INFORMATION
  Report Type: 
  Country: None (occurrence: None)
  Receive Date: 20040126
  Receipt Date: 20030919
  Transmission Date: 20041129
  Serious: No
  Sender: FDA-Public Use
  Company Number: USA030947763

PATIENT
  Age: 18 Year
  Sex: Female

DRUGS (2)
  1. STRATTERA [Suspect]
     Dates: start: 20030101
  2. BIRTH CONTROL PILLS [Concomitant]

REACTIONS (2)
  - MONONUCLEOSIS SYNDROME [None]
  - PLATELET COUNT INCREASED [None]
